FAERS Safety Report 13009241 (Version 2)
Quarter: 2016Q4

REPORT INFORMATION
  Report Type: Spontaneous
  Country: US (occurrence: US)
  Receive Date: 20161208
  Receipt Date: 20161212
  Transmission Date: 20170207
  Serious: Yes (Other)
  Sender: FDA-Public Use
  Company Number: US-CELGENEUS-USA-2016118160

PATIENT
  Age: 28 Year
  Sex: Female
  Weight: 95.34 kg

DRUGS (1)
  1. OTEZLA [Suspect]
     Active Substance: APREMILAST
     Indication: PSORIASIS
     Dosage: 60MG
     Route: 048
     Dates: start: 20161118

REACTIONS (10)
  - Mental impairment [Unknown]
  - Nausea [Unknown]
  - Haematochezia [Unknown]
  - Feeling abnormal [Unknown]
  - Premenstrual syndrome [Unknown]
  - Frequent bowel movements [Unknown]
  - Skin irritation [Unknown]
  - Pain [Unknown]
  - Migraine [Unknown]
  - Asthenia [Unknown]

NARRATIVE: CASE EVENT DATE: 20161118
